FAERS Safety Report 6048592-3 (Version None)
Quarter: 2009Q1

REPORT INFORMATION
  Report Type: 
  Country: None (occurrence: None)
  Receive Date: 20090123
  Receipt Date: 20090120
  Transmission Date: 20090719
  Serious: Yes (Hospitalization)
  Sender: FDA-Public Use
  Company Number: JP-ASTRAZENECA-2008AP09903

PATIENT
  Age: 67 Year
  Sex: Male
  Weight: 64 kg

DRUGS (7)
  1. CRESTOR [Suspect]
     Indication: HYPERLIPIDAEMIA
     Route: 048
     Dates: start: 20080723, end: 20081224
  2. TENORMIN [Concomitant]
     Indication: ANGINA PECTORIS
     Dosage: IN MORNING
     Route: 048
     Dates: start: 20060410, end: 20081224
  3. BASEN [Concomitant]
     Indication: DIABETES MELLITUS
     Dosage: JUST BEFORE EACH MEAL
     Route: 048
     Dates: end: 20081224
  4. ASPIRIN [Concomitant]
     Indication: ANGINA PECTORIS
     Dosage: IN MORNING
     Route: 048
     Dates: start: 20060410
  5. DIOVAN [Concomitant]
     Indication: HYPERTENSION
     Dosage: IN MORNING
     Route: 048
     Dates: start: 20060531
  6. GLIMICRON [Concomitant]
     Indication: DIABETES MELLITUS
     Dosage: MORNING/AFTER DINNER
     Route: 048
     Dates: end: 20081224
  7. NORVASC [Concomitant]
     Indication: HYPERTENSION
     Dosage: IN MORNING
     Route: 048
     Dates: start: 20061213

REACTIONS (1)
  - HEPATIC FUNCTION ABNORMAL [None]
